FAERS Safety Report 15960190 (Version 1)
Quarter: 2019Q1

REPORT INFORMATION
  Report Type: Spontaneous
  Country: US (occurrence: US)
  Receive Date: 20190214
  Receipt Date: 20190214
  Transmission Date: 20190417
  Serious: No
  Sender: FDA-Public Use
  Company Number: US-ROCHE-2183087

PATIENT
  Age: 52 Year
  Sex: Male

DRUGS (2)
  1. ERIVEDGE [Suspect]
     Active Substance: VISMODEGIB
     Indication: BASAL CELL CARCINOMA
  2. ERIVEDGE [Suspect]
     Active Substance: VISMODEGIB
     Indication: SKIN CANCER
     Dosage: ON 21/JUN/2018, HE RECEIVED ORAL VISMODEGIB 150 MG ONCE A DAY
     Route: 048
     Dates: start: 20180620

REACTIONS (6)
  - Dizziness [Not Recovered/Not Resolved]
  - Dizziness [Unknown]
  - Cold sweat [Unknown]
  - Nausea [Unknown]
  - Cold sweat [Not Recovered/Not Resolved]
  - Abdominal discomfort [Unknown]

NARRATIVE: CASE EVENT DATE: 20180620
